FAERS Safety Report 9856187 (Version 1)
Quarter: 2014Q1

REPORT INFORMATION
  Report Type: Spontaneous
  Country: US (occurrence: US)
  Receive Date: 20140130
  Receipt Date: 20140130
  Transmission Date: 20141002
  Serious: No
  Sender: FDA-Public Use
  Company Number: US-009507513-1401USA013424

PATIENT
  Age: 39 Year
  Sex: Female
  Weight: 80.7 kg

DRUGS (1)
  1. COZAAR [Suspect]
     Dosage: 50 MG, QD
     Route: 048
     Dates: start: 20000128, end: 20000204

REACTIONS (1)
  - Urticaria [Recovered/Resolved]
